FAERS Safety Report 4506538-0 (Version None)
Quarter: 2004Q4

REPORT INFORMATION
  Report Type: 
  Country: None (occurrence: None)
  Receive Date: 20041122
  Receipt Date: 20041020
  Transmission Date: 20050328
  Serious: Yes (Hospitalization, Other)
  Sender: FDA-Public Use
  Company Number: 200418790US

PATIENT
  Age: 74 Year
  Sex: Male
  Weight: 80 kg

DRUGS (4)
  1. TAXOTERE [Suspect]
     Indication: PANCREATIC CARCINOMA
     Route: 042
     Dates: start: 20041001, end: 20041001
  2. ENOXAPARIN [Suspect]
     Indication: PANCREATIC CARCINOMA
     Route: 058
     Dates: start: 20041007, end: 20041007
  3. IRINOTECAN [Suspect]
     Indication: PANCREATIC CARCINOMA
     Route: 042
     Dates: start: 20041001, end: 20041001
  4. CETUXIMAB [Suspect]
     Indication: PANCREATIC CARCINOMA
     Route: 042
     Dates: start: 20041001, end: 20041001

REACTIONS (4)
  - DEHYDRATION [None]
  - HYPOMAGNESAEMIA [None]
  - HYPONATRAEMIA [None]
  - POST PROCEDURAL DIARRHOEA [None]
